FAERS Safety Report 20810515 (Version 1)
Quarter: 2022Q2

REPORT INFORMATION
  Report Type: Spontaneous
  Country: US (occurrence: US)
  Receive Date: 20220510
  Receipt Date: 20220510
  Transmission Date: 20220721
  Serious: Yes (Hospitalization, Other)
  Sender: FDA-Public Use
  Company Number: US-BIOVITRUM-2022US05891

PATIENT
  Sex: Male

DRUGS (1)
  1. SYNAGIS [Suspect]
     Active Substance: PALIVIZUMAB
     Indication: Respiratory syncytial virus infection
     Route: 065
     Dates: start: 20210309

REACTIONS (5)
  - Respiratory syncytial virus infection [Unknown]
  - Hypoxia [Unknown]
  - Acute respiratory failure [Unknown]
  - Bronchiolitis [Unknown]
  - Pneumonia [Unknown]
